FAERS Safety Report 5498009-2 (Version None)
Quarter: 2007Q4

REPORT INFORMATION
  Report Type: 
  Country: None (occurrence: None)
  Receive Date: 20071018
  Receipt Date: 20070329
  Transmission Date: 20080405
  Serious: Yes (Hospitalization, Other)
  Sender: FDA-Public Use
  Company Number: 2006066744

PATIENT
  Age: 35 Year
  Sex: Female

DRUGS (7)
  1. NEURONTIN [Suspect]
     Indication: PAIN
  2. AMBIEN [Suspect]
  3. RESTORIL [Suspect]
  4. METHADONE HCL [Concomitant]
  5. SOMA [Concomitant]
  6. TRAZODONE HCL [Concomitant]
  7. VICODIN [Concomitant]

REACTIONS (3)
  - DRUG INEFFECTIVE [None]
  - INTENTIONAL OVERDOSE [None]
  - SUICIDE ATTEMPT [None]
